FAERS Safety Report 19128798 (Version 1)
Quarter: 2021Q2

REPORT INFORMATION
  Report Type: Spontaneous
  Country: US (occurrence: US)
  Receive Date: 20210413
  Receipt Date: 20210413
  Transmission Date: 20210717
  Serious: No
  Sender: FDA-Public Use
  Company Number: US-ALLERGAN-2048509US

PATIENT
  Age: 27 Year
  Sex: Female

DRUGS (1)
  1. LATISSE [Suspect]
     Active Substance: BIMATOPROST
     Indication: EYELASH THICKENING
     Dosage: TWICE, 4 DAYS APART
     Dates: start: 20201119, end: 20201211

REACTIONS (4)
  - Inappropriate schedule of product administration [Unknown]
  - Eyelid irritation [Unknown]
  - Eyelid skin dryness [Unknown]
  - Erythema of eyelid [Unknown]

NARRATIVE: CASE EVENT DATE: 20201119
